FAERS Safety Report 4634058-1 (Version None)
Quarter: 2005Q2

REPORT INFORMATION
  Report Type: 
  Country: None (occurrence: None)
  Receive Date: 20050413
  Receipt Date: 20040830
  Transmission Date: 20051028
  Serious: Yes (Hospitalization, Disabling)
  Sender: FDA-Public Use
  Company Number: US-ROCHE-379133

PATIENT
  Age: 31 Year
  Sex: Female
  Weight: 77.1 kg

DRUGS (3)
  1. FUZEON [Suspect]
     Indication: HIV INFECTION
     Route: 058
     Dates: start: 20031001
  2. KALETRA [Concomitant]
     Route: 048
     Dates: start: 20031001
  3. SUSTIVA [Concomitant]
     Route: 048
     Dates: start: 20031001

REACTIONS (3)
  - AMYOTROPHIC LATERAL SCLEROSIS [None]
  - MYELITIS TRANSVERSE [None]
  - RADICULOPATHY [None]
